FAERS Safety Report 9230091 (Version 1)
Quarter: 2013Q2

REPORT INFORMATION
  Report Type: Spontaneous
  Country: US (occurrence: US)
  Receive Date: 20130415
  Receipt Date: 20130415
  Transmission Date: 20140414
  Serious: Yes (Death)
  Sender: FDA-Public Use
  Company Number: US-BAYER-2013-045104

PATIENT
  Age: 16 Year
  Sex: Female
  Weight: 122.45 kg

DRUGS (3)
  1. YAZ [Suspect]
  2. METFORMIN [Concomitant]
     Dosage: 500 MG, 3 Q PM (EVERY EVENING)
  3. ATENOLOL [Concomitant]
     Dosage: 50 MG, Q PM

REACTIONS (1)
  - Pulmonary embolism [Fatal]
